FAERS Safety Report 21663994 (Version 2)
Quarter: 2023Q1

REPORT INFORMATION
  Report Type: Report from Study
  Country: US (occurrence: US)
  Receive Date: 20221130
  Receipt Date: 20230127
  Transmission Date: 20230417
  Serious: No
  Sender: FDA-Public Use
  Company Number: US-ABBVIE-22K-163-4447729-00

PATIENT
  Sex: Female

DRUGS (3)
  1. HUMIRA [Suspect]
     Active Substance: ADALIMUMAB
     Indication: Colitis ulcerative
     Dosage: DAY 23
     Route: 058
     Dates: start: 20211110
  2. HUMIRA [Suspect]
     Active Substance: ADALIMUMAB
     Route: 058
     Dates: end: 20220930
  3. HUMIRA [Suspect]
     Active Substance: ADALIMUMAB
     Route: 058

REACTIONS (9)
  - Colitis ulcerative [Not Recovered/Not Resolved]
  - Frequent bowel movements [Not Recovered/Not Resolved]
  - Constipation [Not Recovered/Not Resolved]
  - Insomnia [Unknown]
  - Flatulence [Not Recovered/Not Resolved]
  - Abdominal distension [Not Recovered/Not Resolved]
  - Drug ineffective [Unknown]
  - Defaecation urgency [Unknown]
  - Abdominal pain upper [Not Recovered/Not Resolved]
